FAERS Safety Report 8953688 (Version 1)
Quarter: 2012Q4

REPORT INFORMATION
  Report Type: 
  Country: GB (occurrence: GB)
  Receive Date: 20121206
  Receipt Date: 20121206
  Transmission Date: 20130627
  Serious: Yes (Hospitalization, Other)
  Sender: FDA-Public Use
  Company Number: GB-UCBSA-072484

PATIENT
  Age: 42 None
  Sex: Female
  Weight: 104 kg

DRUGS (7)
  1. KEPPRA [Suspect]
     Dosage: 300 MG DAILY
     Dates: start: 201005, end: 20100809
  2. TEMOZOLOMIDE [Suspect]
     Indication: GLIOBLASTOMA
     Route: 048
     Dates: start: 20100601, end: 20100831
  3. TEMOZOLOMIDE [Suspect]
     Indication: GLIOBLASTOMA
     Dates: start: 20101102
  4. BEVACIZUMAB [Suspect]
     Indication: GLIOBLASTOMA
     Dosage: UNKNOWN DOSE
     Route: 042
     Dates: start: 20100601, end: 20100831
  5. OMEPRAZOLE [Concomitant]
     Dosage: DOSE: 20 MG
     Dates: start: 201004
  6. DEXAMETHASONE [Concomitant]
     Dosage: 0.5 MG
     Dates: start: 20100720, end: 20100726
  7. EPILIM [Concomitant]
     Dosage: 600mg

REACTIONS (2)
  - Rash pruritic [Recovered/Resolved]
  - Abscess [Unknown]
